FAERS Safety Report 7559899-2 (Version None)
Quarter: 2011Q2

REPORT INFORMATION
  Report Type: 
  Country: None (occurrence: None)
  Receive Date: 20110621
  Receipt Date: 20110606
  Transmission Date: 20111010
  Serious: Yes (Other)
  Sender: FDA-Public Use
  Company Number: PHHY2011US40764

PATIENT
  Sex: Female

DRUGS (2)
  1. RECLAST [Suspect]
     Indication: OSTEOPOROSIS
     Dosage: 5 MG, YEARLY ONCE
     Dates: start: 20101229
  2. FOSAMAX [Suspect]
     Indication: OSTEOPOROSIS
     Dosage: 70 MG WEEKLY
     Route: 048
     Dates: start: 20030101, end: 20100101

REACTIONS (7)
  - SKIN EROSION [None]
  - OSTEONECROSIS OF JAW [None]
  - IMPAIRED HEALING [None]
  - ORAL TORUS [None]
  - BENIGN NEOPLASM [None]
  - MUCOSAL ULCERATION [None]
  - TRACHEAL INFLAMMATION [None]
